FAERS Safety Report 26151687 (Version 1)
Quarter: 2025Q4

REPORT INFORMATION
  Report Type: Report from Study
  Country: US (occurrence: US)
  Receive Date: 20251212
  Receipt Date: 20251212
  Transmission Date: 20260118
  Serious: Yes (Other)
  Sender: ABBVIE
  Company Number: US-ABBVIE-6573263

PATIENT
  Age: 73 Year
  Sex: Female

DRUGS (2)
  1. SKYRIZI [Suspect]
     Active Substance: RISANKIZUMAB-RZAA
     Indication: Crohn^s disease
     Route: 058
     Dates: start: 20241208, end: 2025
  2. SKYRIZI [Suspect]
     Active Substance: RISANKIZUMAB-RZAA
     Route: 058
     Dates: start: 2025

REACTIONS (12)
  - Spinal operation [Unknown]
  - Back pain [Not Recovered/Not Resolved]
  - Device issue [Not Recovered/Not Resolved]
  - Feeling abnormal [Unknown]
  - Crohn^s disease [Not Recovered/Not Resolved]
  - Hypoacusis [Unknown]
  - Influenza [Recovered/Resolved]
  - Constipation [Unknown]
  - Muscle spasms [Not Recovered/Not Resolved]
  - Spinal operation [Unknown]
  - Cholecystectomy [Unknown]
  - Pain [Not Recovered/Not Resolved]

NARRATIVE: CASE EVENT DATE: 20250101
